FAERS Safety Report 8477299-8 (Version None)
Quarter: 2012Q2

REPORT INFORMATION
  Report Type: 
  Country: None (occurrence: None)
  Receive Date: 20120629
  Receipt Date: 20120619
  Transmission Date: 20120825
  Serious: Yes (Other)
  Sender: FDA-Public Use
  Company Number: US-JNJFOC-20120610334

PATIENT
  Sex: Female
  Weight: 61.24 kg

DRUGS (5)
  1. REMICADE [Suspect]
     Indication: RHEUMATOID ARTHRITIS
     Route: 042
     Dates: start: 20120523
  2. REMICADE [Suspect]
     Route: 042
     Dates: start: 20080101, end: 20100101
  3. REMICADE [Suspect]
     Route: 042
     Dates: start: 20120606
  4. PERCOCET [Concomitant]
     Indication: PAIN
     Dosage: 10/325 MG
     Route: 048
     Dates: start: 20070101
  5. CELEBREX [Concomitant]
     Indication: PAIN
     Route: 048
     Dates: start: 20060101

REACTIONS (7)
  - ENDOMETRIOSIS [None]
  - RHEUMATOID ARTHRITIS [None]
  - THROAT IRRITATION [None]
  - OROPHARYNGEAL DISCOMFORT [None]
  - ADVERSE EVENT [None]
  - JOINT INJURY [None]
  - KNEE OPERATION [None]
